FAERS Safety Report 4536561-1 (Version None)
Quarter: 2004Q4

REPORT INFORMATION
  Report Type: 
  Country: None (occurrence: None)
  Receive Date: 20041223
  Receipt Date: 20040623
  Transmission Date: 20050328
  Serious: Yes (Other)
  Sender: FDA-Public Use
  Company Number: US-GLAXOSMITHKLINE-A0515847A

PATIENT
  Sex: Female

DRUGS (2)
  1. CIMETIDINE [Suspect]
     Indication: MASTOCYTOSIS
     Dosage: 400MG TWICE PER DAY
     Route: 048
  2. ZANTAC [Suspect]
     Indication: MASTOCYTOSIS
     Dosage: 150MG TWICE PER DAY
     Route: 048

REACTIONS (2)
  - ANAPHYLACTIC REACTION [None]
  - DRUG INEFFECTIVE [None]
